FAERS Safety Report 11209788 (Version 1)
Quarter: 2015Q2

REPORT INFORMATION
  Report Type: Spontaneous
  Country: US (occurrence: US)
  Receive Date: 20150622
  Receipt Date: 20150622
  Transmission Date: 20150821
  Serious: Yes (Other)
  Sender: FDA-Public Use
  Company Number: CHPA2015US003083

PATIENT

DRUGS (1)
  1. EXCEDRIN MIGRAINE [Suspect]
     Active Substance: ACETAMINOPHEN\ASPIRIN\CAFFEINE
     Indication: MIGRAINE
     Route: 065

REACTIONS (6)
  - Gastric haemorrhage [Unknown]
  - Pain [Not Recovered/Not Resolved]
  - Hepatomegaly [Unknown]
  - Vomiting [Unknown]
  - Drug ineffective [Unknown]
  - Headache [Unknown]
